FAERS Safety Report 25582494 (Version 1)
Quarter: 2025Q3

REPORT INFORMATION
  Report Type: Spontaneous
  Country: US (occurrence: US)
  Receive Date: 20250720
  Receipt Date: 20250720
  Transmission Date: 20251020
  Serious: No
  Sender: DR REDDYS
  Company Number: US-DRL-USA-USA/2025/07/010493

PATIENT
  Age: 58 Year
  Sex: Female

DRUGS (3)
  1. TRIAMCINOLONE [Suspect]
     Active Substance: TRIAMCINOLONE
     Indication: Granuloma annulare
     Route: 026
  2. ADALIMUMAB [Concomitant]
     Active Substance: ADALIMUMAB
     Indication: Granuloma annulare
  3. HYDROXYCHLOROQUINE [Concomitant]
     Active Substance: HYDROXYCHLOROQUINE
     Indication: Granuloma annulare

REACTIONS (2)
  - Drug ineffective for unapproved indication [Unknown]
  - Incorrect route of product administration [Unknown]
